FAERS Safety Report 22346572 (Version 1)
Quarter: 2023Q2

REPORT INFORMATION
  Report Type: Report from Study
  Country: BR (occurrence: BR)
  Receive Date: 20230520
  Receipt Date: 20230520
  Transmission Date: 20230721
  Serious: Yes (Other)
  Sender: FDA-Public Use
  Company Number: BR-CELLTRION INC.-2022BR021615

PATIENT

DRUGS (7)
  1. INFLIXIMAB [Suspect]
     Active Substance: INFLIXIMAB
     Indication: Uveitis
     Dosage: 6 AMPOULES EVERY 2 MONTHS
     Route: 042
  2. PREDNISOLONE ACETATE [Concomitant]
     Active Substance: PREDNISOLONE ACETATE
     Dosage: UNK UNK, QD
     Route: 047
  3. BRIMONIDINE TARTRATE [Concomitant]
     Active Substance: BRIMONIDINE TARTRATE
     Dosage: 2 DROPS A DAY
     Route: 047
  4. DORZOLAMIDE HYDROCHLORIDE\TIMOLOL MALEATE [Concomitant]
     Active Substance: DORZOLAMIDE HYDROCHLORIDE\TIMOLOL MALEATE
     Dosage: 2 DROPS A DAY
     Route: 047
  5. MYDRIACYL [Concomitant]
     Active Substance: TROPICAMIDE
     Dosage: 2 DROPS A DAY
     Route: 047
  6. SYSTANE (HYPROMELLOSE 2910 (4000 MPA.S)) [Concomitant]
     Active Substance: HYPROMELLOSE 2910 (4000 MPA.S)
     Dosage: 2 DROPS A DAY
     Route: 047
  7. LUMIGAN [Concomitant]
     Active Substance: BIMATOPROST
     Dosage: 2 DROPS A DAY
     Route: 047

REACTIONS (2)
  - Uveitis [Unknown]
  - Intentional product use issue [Unknown]
